FAERS Safety Report 20912573 (Version 1)
Quarter: 2022Q2

REPORT INFORMATION
  Report Type: Spontaneous
  Country: US (occurrence: None)
  Receive Date: 20220603
  Receipt Date: 20220603
  Transmission Date: 20220721
  Serious: Yes (Disabling)
  Sender: FDA-Public Use
  Company Number: None

PATIENT
  Age: 84 Year
  Sex: Male
  Weight: 94.5 kg

DRUGS (2)
  1. ELIGARD [Suspect]
     Active Substance: LEUPROLIDE ACETATE
     Indication: Prostate cancer
     Dosage: OTHER FREQUENCY : EVERY 6  MONTHS;?
     Route: 058
     Dates: start: 20220215
  2. multi-vitamin/mineral, K, Mg, Ca, Zn, D, [Concomitant]

REACTIONS (12)
  - Fatigue [None]
  - Hyperhidrosis [None]
  - Feeling hot [None]
  - Asthenia [None]
  - Dizziness [None]
  - Dizziness [None]
  - Fatigue [None]
  - Hot flush [None]
  - Feeling cold [None]
  - Appetite disorder [None]
  - Middle insomnia [None]
  - Micturition urgency [None]

NARRATIVE: CASE EVENT DATE: 20220430
